FAERS Safety Report 17487414 (Version 3)
Quarter: 2020Q1

REPORT INFORMATION
  Report Type: Spontaneous
  Country: US (occurrence: US)
  Receive Date: 20200303
  Receipt Date: 20200310
  Transmission Date: 20200409
  Serious: Yes (Hospitalization, Other)
  Sender: FDA-Public Use
  Company Number: US-GILEAD-2020-0453275

PATIENT
  Sex: Male

DRUGS (4)
  1. STRIBILD [Suspect]
     Active Substance: COBICISTAT\ELVITEGRAVIR\EMTRICITABINE\TENOFOVIR DISOPROXIL FUMARATE
     Indication: HIV INFECTION
     Route: 065
  2. ATRIPLA [Suspect]
     Active Substance: EFAVIRENZ\EMTRICITABINE\TENOFOVIR DISOPROXIL FUMARATE
     Indication: HIV INFECTION
     Route: 065
  3. TRUVADA [Suspect]
     Active Substance: EMTRICITABINE\TENOFOVIR DISOPROXIL FUMARATE
     Indication: HIV INFECTION
     Dosage: UNK
     Route: 065
  4. GENVOYA [Suspect]
     Active Substance: COBICISTAT\ELVITEGRAVIR\EMTRICITABINE\TENOFOVIR ALAFENAMIDE FUMARATE
     Indication: HIV INFECTION
     Route: 065

REACTIONS (9)
  - Hip fracture [Unknown]
  - Osteoporosis [Unknown]
  - Stress [Recovered/Resolved]
  - Femoral neck fracture [Unknown]
  - Withdrawal syndrome [Recovered/Resolved]
  - Stress [Unknown]
  - Depression [Not Recovered/Not Resolved]
  - Job dissatisfaction [Not Recovered/Not Resolved]
  - Homeless [Not Recovered/Not Resolved]

NARRATIVE: CASE EVENT DATE: 2017
